FAERS Safety Report 5840160-9 (Version None)
Quarter: 2008Q3

REPORT INFORMATION
  Report Type: 
  Country: None (occurrence: None)
  Receive Date: 20080811
  Receipt Date: 20080728
  Transmission Date: 20090109
  Serious: Yes (Other)
  Sender: FDA-Public Use
  Company Number: CH-ELI_LILLY_AND_COMPANY-CH200807006372

PATIENT
  Age: 73 Year
  Sex: Female

DRUGS (4)
  1. GEMZAR [Suspect]
     Indication: T-CELL LYMPHOMA
     Dosage: UNK, 6 ADMINISTRATIONS OVER SIX WEEKS
     Route: 065
  2. GEMZAR [Suspect]
     Dosage: UNK, LOW DOSE
     Route: 065
  3. ALEMTUZUMAB [Concomitant]
     Indication: T-CELL LYMPHOMA
     Dosage: 30 MG, OVER SIX MONTHS INTERMITTENTLY
     Route: 065
  4. ALEMTUZUMAB [Concomitant]
     Dosage: 30 MG, THREE TIMES A WEEK FOR FOUR CONSECUTIVE WEEKS.

REACTIONS (4)
  - CONGENITAL CYTOMEGALOVIRUS INFECTION [None]
  - GENERALISED OEDEMA [None]
  - STEATORRHOEA [None]
  - WEIGHT DECREASED [None]
